FAERS Safety Report 6278268-9 (Version None)
Quarter: 2009Q3

REPORT INFORMATION
  Report Type: 
  Country: None (occurrence: None)
  Receive Date: 20090720
  Receipt Date: 20090720
  Transmission Date: 20100115
  Serious: No
  Sender: FDA-Public Use
  Company Number: None

PATIENT
  Age: 60 Year
  Sex: Female

DRUGS (2)
  1. GLEEVEC [Suspect]
     Indication: NEOPLASM MALIGNANT
     Dosage: 200MG QD ORAL
     Route: 048
     Dates: start: 20090313, end: 20090411
  2. GLEEVEC [Suspect]
     Indication: NEOPLASM MALIGNANT
     Dosage: 200MG QD ORAL
     Route: 048
     Dates: start: 20090626

REACTIONS (1)
  - RASH [None]
